FAERS Safety Report 24756024 (Version 4)
Quarter: 2025Q1

REPORT INFORMATION
  Report Type: Spontaneous
  Country: US (occurrence: US)
  Receive Date: 20241219
  Receipt Date: 20250328
  Transmission Date: 20250409
  Serious: Yes (Other)
  Sender: BAUSCH AND LOMB
  Company Number: US-BAUSCH-BL-2024-018262

PATIENT
  Age: 76 Year
  Sex: Female

DRUGS (2)
  1. MYSOLINE [Suspect]
     Active Substance: PRIMIDONE
     Indication: Seizure
     Route: 048
  2. MYSOLINE [Suspect]
     Active Substance: PRIMIDONE
     Indication: Epilepsy

REACTIONS (4)
  - Cataract [Unknown]
  - Seizure [Recovered/Resolved]
  - Disease recurrence [Recovered/Resolved]
  - Adverse event following immunisation [Unknown]
